FAERS Safety Report 4848620-4 (Version None)
Quarter: 2005Q4

REPORT INFORMATION
  Report Type: 
  Country: None (occurrence: None)
  Receive Date: 20051206
  Receipt Date: 20051124
  Transmission Date: 20060501
  Serious: Yes (Other)
  Sender: FDA-Public Use
  Company Number: 2005145566

PATIENT
  Age: 57 Year
  Sex: Female
  Weight: 68 kg

DRUGS (5)
  1. SULFASALAZINE [Suspect]
     Indication: RHEUMATOID ARTHRITIS
     Dosage: 2000 MG (500 MG, 4 IN 1 D), ORAL
     Route: 048
     Dates: start: 20050601
  2. OMEPRAZOLE [Concomitant]
  3. ENALAPRIL MALEATE [Concomitant]
  4. CALCIUM CITRATE (CALCIUM CITRATE) [Concomitant]
  5. ALENDRONATE SODIUM [Concomitant]

REACTIONS (4)
  - ANTIPHOSPHOLIPID ANTIBODIES POSITIVE [None]
  - CONJUNCTIVAL HAEMORRHAGE [None]
  - EPISTAXIS [None]
  - LIVEDO RETICULARIS [None]
